FAERS Safety Report 10146766 (Version 1)
Quarter: 2014Q2

REPORT INFORMATION
  Report Type: Spontaneous
  Country: US (occurrence: US)
  Receive Date: 20140501
  Receipt Date: 20140501
  Transmission Date: 20141212
  Serious: No
  Sender: FDA-Public Use
  Company Number: US-BAUSCH-BL-2013-001872

PATIENT
  Age: 42 Year
  Sex: Female
  Weight: 71.73 kg

DRUGS (4)
  1. LOTEMAX (LOTEPREDNOL ETABONATE OPHTHALMIC SUSPENSION 0.5%) [Suspect]
     Indication: DRY EYE
     Dosage: 1 DROP IN EACH EYE; FOUR TIMES DAILY; OPHTHALMIC
     Route: 047
     Dates: start: 20130316, end: 20130323
  2. LOTEMAX (LOTEPREDNOL ETABONATE OPHTHALMIC SUSPENSION 0.5%) [Suspect]
     Indication: EYE INFLAMMATION
     Dosage: 1 DROP IN EACH EYE; TWICE DAILY; OPHTHALMIC
     Route: 047
     Dates: start: 20130324
  3. CICLOSPORIN [Concomitant]
     Indication: DRY EYE
  4. CARMELLOSE [Concomitant]
     Indication: DRY EYE

REACTIONS (2)
  - Oral herpes [Recovering/Resolving]
  - Off label use [Recovering/Resolving]
